FAERS Safety Report 7341174-2 (Version None)
Quarter: 2011Q1

REPORT INFORMATION
  Report Type: 
  Country: None (occurrence: None)
  Receive Date: 20110309
  Receipt Date: 20110228
  Transmission Date: 20110831
  Serious: Yes (Other)
  Sender: FDA-Public Use
  Company Number: B0702775A

PATIENT
  Age: 69 Year
  Sex: Female

DRUGS (4)
  1. EMTRIVA [Concomitant]
     Indication: HIV INFECTION
     Route: 048
     Dates: start: 20100101
  2. SEROPRAM [Suspect]
     Dosage: 20MG PER DAY
     Route: 048
  3. ISENTRESS [Concomitant]
     Indication: HIV INFECTION
     Dosage: 400MG TWICE PER DAY
     Route: 048
     Dates: start: 20100101
  4. CELSENTRI [Suspect]
     Indication: HIV INFECTION
     Dosage: 300MG TWICE PER DAY
     Route: 048
     Dates: start: 20101118

REACTIONS (6)
  - FALL [None]
  - LOSS OF CONSCIOUSNESS [None]
  - PRESYNCOPE [None]
  - DRUG INTERACTION [None]
  - CEREBRAL HYPOPERFUSION [None]
  - INJURY [None]
